FAERS Safety Report 4930599-8 (Version None)
Quarter: 2006Q1

REPORT INFORMATION
  Report Type: 
  Country: None (occurrence: None)
  Receive Date: 20060227
  Receipt Date: 20060213
  Transmission Date: 20060701
  Serious: Yes (Hospitalization)
  Sender: FDA-Public Use
  Company Number: 221646

PATIENT
  Age: 74 Year
  Sex: Female
  Weight: 69.8 kg

DRUGS (9)
  1. AVASTIN [Suspect]
     Indication: BREAST CANCER METASTATIC
     Dosage: 1064 MG, Q3W, INTRAVENOUS
     Route: 042
     Dates: start: 20050817, end: 20060106
  2. TAXOTERE [Suspect]
     Indication: BREAST CANCER METASTATIC
     Dosage: 130 MG, Q3W, INTRAVENOUS
     Route: 042
     Dates: start: 20050526, end: 20060106
  3. AVASTIN [Concomitant]
  4. AVASTIN [Suspect]
  5. LEVAQUIN [Concomitant]
  6. AUGMENTIN '250' [Concomitant]
  7. FLAGYL [Concomitant]
  8. HEPARIN [Concomitant]
  9. PAXIL [Concomitant]

REACTIONS (7)
  - ACUTE RESPIRATORY FAILURE [None]
  - ATRIAL FIBRILLATION [None]
  - ATRIAL TACHYCARDIA [None]
  - DIARRHOEA [None]
  - HYPOXIA [None]
  - PLEURAL EFFUSION [None]
  - PNEUMONIA [None]
